FAERS Safety Report 8819242 (Version 1)
Quarter: 2012Q4

REPORT INFORMATION
  Report Type: 
  Country: US (occurrence: US)
  Receive Date: 20121001
  Receipt Date: 20121001
  Transmission Date: 20130627
  Serious: Yes (Hospitalization)
  Sender: FDA-Public Use
  Company Number: US-JNJFOC-20120908880

PATIENT
  Sex: Female
  Weight: 58.97 kg

DRUGS (6)
  1. DURAGESIC [Suspect]
     Indication: SPINAL DEFORMITY
     Route: 062
  2. DURAGESIC [Suspect]
     Indication: SPINAL DEFORMITY
     Dosage: 37.5 ug/hr (12.5 ug/hr+25 ug/hr)
     Route: 062
  3. DURAGESIC [Suspect]
     Indication: FIBROMYALGIA
     Dosage: 37.5 ug/hr (12.5 ug/hr+25 ug/hr)
     Route: 062
  4. DURAGESIC [Suspect]
     Indication: FIBROMYALGIA
     Route: 062
  5. SANDOZ FENTANYL TRANSDERMAL SYSTEM [Suspect]
     Indication: SPINAL DEFORMITY
     Dosage: 37.5 ug/hr (12.5 ug/hr   25 ug/hr)



12.5 ug/hr (NDC: 0781 7240 55)

25 ug/hr (NDC: 0781 7241 55)
     Route: 062
     Dates: start: 2010
  6. SANDOZ FENTANYL TRANSDERMAL SYSTEM [Suspect]
     Indication: FIBROMYALGIA
     Dosage: 37.5 ug/hr (12.5 ug/hr   25 ug/hr)



12.5 ug/hr (NDC: 0781 7240 55)

25 ug/hr (NDC: 0781 7241 55)
     Route: 062
     Dates: start: 2010

REACTIONS (5)
  - Hip fracture [Recovered/Resolved]
  - Abnormal loss of weight [Recovering/Resolving]
  - Gastrointestinal infection [Recovered/Resolved]
  - Product quality issue [Unknown]
  - Drug ineffective [Not Recovered/Not Resolved]
